FAERS Safety Report 20302588 (Version 3)
Quarter: 2022Q1

REPORT INFORMATION
  Report Type: Spontaneous
  Country: NL (occurrence: NL)
  Receive Date: 20220106
  Receipt Date: 20220303
  Transmission Date: 20220423
  Serious: Yes (Life-Threatening, Hospitalization)
  Sender: FDA-Public Use
  Company Number: NL-BIOGEN-2022BI01083192

PATIENT
  Age: 57 Year
  Sex: Female

DRUGS (2)
  1. DALFAMPRIDINE [Suspect]
     Active Substance: DALFAMPRIDINE
     Indication: Gait disturbance
     Route: 065
     Dates: start: 2016
  2. DALFAMPRIDINE [Suspect]
     Active Substance: DALFAMPRIDINE
     Dosage: 600 MILLIGRAM, 60 TABLETS OF 10 MG
     Route: 065

REACTIONS (8)
  - Suicide attempt [Unknown]
  - Poisoning [Unknown]
  - Coma [Unknown]
  - Seizure [Unknown]
  - Rhabdomyolysis [Unknown]
  - Acute kidney injury [Unknown]
  - Hypertension [Unknown]
  - Pneumonia aspiration [Unknown]
